FAERS Safety Report 21750467 (Version 1)
Quarter: 2022Q4

REPORT INFORMATION
  Report Type: Spontaneous
  Country: US (occurrence: US)
  Receive Date: 20221219
  Receipt Date: 20221219
  Transmission Date: 20230112
  Serious: Yes (Death, Other)
  Sender: FDA-Public Use
  Company Number: US-009507513-2212USA004820

PATIENT
  Sex: Male

DRUGS (9)
  1. PREVYMIS [Suspect]
     Active Substance: LETERMOVIR
     Indication: Prophylaxis
     Dosage: 480 MILLIGRAM
  2. PROGRAF [Concomitant]
     Active Substance: TACROLIMUS
  3. VALCYTE [Concomitant]
     Active Substance: VALGANCICLOVIR HYDROCHLORIDE
  4. PREDNISONE [Concomitant]
     Active Substance: PREDNISONE
  5. ALBUTEROL [Concomitant]
     Active Substance: ALBUTEROL
  6. SALIN [Concomitant]
  7. TOBRAMYCIN [Concomitant]
     Active Substance: TOBRAMYCIN
  8. MAGNESIUM [Concomitant]
     Active Substance: MAGNESIUM
  9. INSULIN NOS [Concomitant]
     Active Substance: INSULIN NOS

REACTIONS (4)
  - Non-Hodgkin^s lymphoma [Fatal]
  - Cardiac failure [Fatal]
  - Epstein-Barr virus infection [Unknown]
  - Product use in unapproved indication [Unknown]
